FAERS Safety Report 8016043-5 (Version None)
Quarter: 2011Q4

REPORT INFORMATION
  Report Type: 
  Country: None (occurrence: None)
  Receive Date: 20111230
  Receipt Date: 20111230
  Transmission Date: 20120403
  Serious: No
  Sender: FDA-Public Use
  Company Number: None

PATIENT
  Age: 53 Year
  Sex: Female
  Weight: 72.574 kg

DRUGS (1)
  1. CHANTIX [Suspect]

REACTIONS (8)
  - NAIL BED DISORDER [None]
  - DEPRESSION [None]
  - THINKING ABNORMAL [None]
  - URTICARIA [None]
  - SKIN EXFOLIATION [None]
  - RASH [None]
  - MALAISE [None]
  - ANXIETY [None]
